FAERS Safety Report 14684032 (Version 2)
Quarter: 2018Q2

REPORT INFORMATION
  Report Type: Spontaneous
  Country: US (occurrence: US)
  Receive Date: 20180327
  Receipt Date: 20180405
  Transmission Date: 20180711
  Serious: No
  Sender: FDA-Public Use
  Company Number: US-GLAXOSMITHKLINE-US2018049746

PATIENT
  Age: 89 Year
  Sex: Female

DRUGS (6)
  1. ANORO ELLIPTA [Suspect]
     Active Substance: UMECLIDINIUM BROMIDE\VILANTEROL TRIFENATATE
     Indication: BRONCHITIS
  2. SYNTHROID [Concomitant]
     Active Substance: LEVOTHYROXINE SODIUM
  3. MYRBETRIQ [Suspect]
     Active Substance: MIRABEGRON
     Indication: HYPERTONIC BLADDER
     Dosage: 50 MG, QD
     Route: 048
     Dates: start: 20180307
  4. ANORO ELLIPTA [Suspect]
     Active Substance: UMECLIDINIUM BROMIDE\VILANTEROL TRIFENATATE
     Indication: LUNG DISORDER
     Dosage: 1 PUFF(S), QD
     Route: 055
     Dates: start: 20180308
  5. BREO ELLIPTA [Concomitant]
     Active Substance: FLUTICASONE FUROATE\VILANTEROL TRIFENATATE
     Indication: BRONCHITIS
     Dosage: UNK
     Dates: start: 20180218
  6. PAROXETINE. [Concomitant]
     Active Substance: PAROXETINE

REACTIONS (13)
  - Condition aggravated [Not Recovered/Not Resolved]
  - Dysphonia [Unknown]
  - Abdominal pain upper [Unknown]
  - Dizziness [Not Recovered/Not Resolved]
  - Product used for unknown indication [Not Recovered/Not Resolved]
  - Insomnia [Unknown]
  - Fatigue [Not Recovered/Not Resolved]
  - Palpitations [Unknown]
  - Musculoskeletal pain [Unknown]
  - Heart rate increased [Recovered/Resolved]
  - Hypertonic bladder [Not Recovered/Not Resolved]
  - Throat irritation [Unknown]
  - Dry throat [Unknown]

NARRATIVE: CASE EVENT DATE: 20180308
